FAERS Safety Report 8952381 (Version 5)
Quarter: 2013Q1

REPORT INFORMATION
  Report Type: Spontaneous
  Country: US (occurrence: US)
  Receive Date: 20121205
  Receipt Date: 20130206
  Transmission Date: 20140127
  Serious: No
  Sender: FDA-Public Use
  Company Number: US-BIOGENIDEC-2012BI056450

PATIENT
  Age: 53 None
  Sex: Female

DRUGS (1)
  1. TYSABRI [Suspect]
     Indication: MULTIPLE SCLEROSIS
     Route: 042
     Dates: start: 20100428

REACTIONS (5)
  - Herpes zoster [Recovered/Resolved]
  - Influenza like illness [Recovered/Resolved]
  - Muscle spasms [Unknown]
  - Pain [Unknown]
  - Vomiting [Recovered/Resolved]
